FAERS Safety Report 23052946 (Version 4)
Quarter: 2024Q1

REPORT INFORMATION
  Report Type: Report from Study
  Country: US (occurrence: US)
  Receive Date: 20231011
  Receipt Date: 20240305
  Transmission Date: 20240409
  Serious: Yes (Death, Hospitalization, Other)
  Sender: FDA-Public Use
  Company Number: US-ABBVIE-5335220

PATIENT
  Sex: Female
  Weight: 11 kg

DRUGS (102)
  1. VENCLEXTA [Suspect]
     Active Substance: VENETOCLAX
     Indication: Acute myeloid leukaemia
     Dosage: TAKE 1 TABLET BY MOUTH ALONG WITH THREE 50MG TABLETS DAILY WITH FOOD AND WATER FOR A TOTAL DOSE O...
     Route: 048
     Dates: start: 20230716
  2. VENCLEXTA [Suspect]
     Active Substance: VENETOCLAX
     Indication: Acute myeloid leukaemia
     Dosage: DURATION TEXT: 50MG TABLETS DAILY?FORM STRENGTH: 10 MILLIGRAM
     Route: 048
  3. VENCLEXTA [Suspect]
     Active Substance: VENETOCLAX
     Indication: Acute myeloid leukaemia
     Route: 048
  4. VENCLEXTA [Suspect]
     Active Substance: VENETOCLAX
     Indication: Acute myeloid leukaemia
     Route: 048
  5. VENCLEXTA [Suspect]
     Active Substance: VENETOCLAX
     Indication: Acute myeloid leukaemia
     Dosage: INCREASED DOSE
     Route: 048
     Dates: start: 20230720, end: 20230720
  6. VENCLEXTA [Suspect]
     Active Substance: VENETOCLAX
     Indication: Acute myeloid leukaemia
     Route: 048
     Dates: start: 20230721, end: 20230920
  7. VENCLEXTA [Suspect]
     Active Substance: VENETOCLAX
     Indication: Acute myeloid leukaemia
     Dosage: Q245
     Route: 048
     Dates: start: 202307, end: 202308
  8. VENCLEXTA [Suspect]
     Active Substance: VENETOCLAX
     Indication: Acute myeloid leukaemia
     Route: 048
     Dates: start: 20230809, end: 20230815
  9. LEVAQUIN [Concomitant]
     Active Substance: LEVOFLOXACIN
     Indication: Product used for unknown indication
     Dosage: 25 MG/ML SOLUTION?DISPENSE 63 ML
  10. ZINC OXIDE [Concomitant]
     Active Substance: ZINC OXIDE
     Indication: Product used for unknown indication
     Dosage: 40% PASTE?APPLY 1 APPLICATION EXTERNALLY AS NEEDED FOR WITH DIAPER CHANGES?ONCE
     Dates: start: 20230720, end: 20230816
  11. ZOFRAN [Concomitant]
     Active Substance: ONDANSETRON HYDROCHLORIDE
     Indication: Product used for unknown indication
     Dosage: 0.8 MG/ML?4 MG/5 ML SOLUTION?ON AZACITIDINE DAYS, THEN EVERY 8 HOURS IF NEEDED FOR NAUSEA/VOMITIN...
  12. ZOFRAN [Concomitant]
     Active Substance: ONDANSETRON HYDROCHLORIDE
     Indication: Product used for unknown indication
     Dosage: DOSAGE: 2 MG/ML INJ 1.6 MG
     Dates: start: 20230721, end: 20230816
  13. ZOFRAN [Concomitant]
     Active Substance: ONDANSETRON HYDROCHLORIDE
     Indication: Product used for unknown indication
     Dosage: TIME INTERVAL: 0.125 HOURS: DOSAGE: 2 MG/ML INJ 1.6 MG?ONCE
     Dates: start: 202307, end: 202307
  14. ZOFRAN [Concomitant]
     Active Substance: ONDANSETRON HYDROCHLORIDE
     Indication: Product used for unknown indication
     Dosage: TIME INTERVAL: 0.16666667 HOURS: DOSAGE: 2 MG/ML INJ 1.52 MG?NEEDED
     Dates: start: 202307, end: 202307
  15. ZOFRAN [Concomitant]
     Active Substance: ONDANSETRON HYDROCHLORIDE
     Indication: Product used for unknown indication
     Dosage: TIME INTERVAL: 0.125 HOURS: DOSAGE: 2 MG/ML INJ 1.52 MG?NEEDED
     Dates: start: 20230716, end: 20230721
  16. ZOFRAN [Concomitant]
     Active Substance: ONDANSETRON HYDROCHLORIDE
     Indication: Product used for unknown indication
     Dosage: DOSAGE: 2 MG/ML INJ 1.01 MG?NEEDED
     Dates: start: 20230714, end: 20230714
  17. ZOFRAN [Concomitant]
     Active Substance: ONDANSETRON HYDROCHLORIDE
     Indication: Product used for unknown indication
     Dosage: DOSAGE: 2 MG/ML INJ 1.52 MG
     Dates: start: 202307, end: 202307
  18. ZOFRAN [Concomitant]
     Active Substance: ONDANSETRON HYDROCHLORIDE
     Indication: Product used for unknown indication
     Dosage: TIME INTERVAL: 0.125 HOURS: 0.8MG/ML?SOLN 1.6 MG?NEEDED
     Route: 048
     Dates: start: 20230712, end: 20230716
  19. SULFATRIM [Concomitant]
     Active Substance: SULFAMETHOXAZOLE\TRIMETHOPRIM
     Indication: Product used for unknown indication
     Dosage: 40-8 MG/ML?200-40 MG/ML SUSPENSION?MONDAY AND TUESDAY, 9 AM/ 9 PM
  20. SULFATRIM [Concomitant]
     Active Substance: SULFAMETHOXAZOLE\TRIMETHOPRIM
     Indication: Product used for unknown indication
     Dosage: TIME INTERVAL: 0.33333333 DAYS: SULFAMETHOXAZOLE-TRIMETHOPRIM (SULFATRIM 40-8 MG/ML) ORAL SUSP 24 MG
     Route: 048
     Dates: start: 20230717, end: 20230816
  21. ZOVIRAX [Concomitant]
     Active Substance: ACYCLOVIR
     Indication: Product used for unknown indication
     Dosage: 40 MG/ML 200 MG/5ML SUSPENTION?IN NG TUBE 9 AM/ 9 PM
  22. ZOVIRAX [Concomitant]
     Active Substance: ACYCLOVIR
     Indication: Product used for unknown indication
     Dosage: DOSAGE: 40 MG/ML 276MG
     Route: 048
     Dates: start: 20230731, end: 20230816
  23. ZOVIRAX [Concomitant]
     Active Substance: ACYCLOVIR
     Indication: Product used for unknown indication
     Dosage: DOSAGE: 40 MG/ML 224MG
     Route: 048
     Dates: start: 20230712, end: 20230731
  24. BENADRYL [Concomitant]
     Active Substance: DIPHENHYDRAMINE HYDROCHLORIDE
     Indication: Product used for unknown indication
     Dosage: 2.5 MG/ML, 12.5 MG/5ML ELIXIR ?AS NEEDED ?NAUSEA/VOMITING GIVE WITH METOCLOPRAMIDE
  25. BENADRYL [Concomitant]
     Active Substance: DIPHENHYDRAMINE HYDROCHLORIDE
     Indication: Product used for unknown indication
     Dosage: TIME INTERVAL: AS NECESSARY: DOSAGE: 50 MG/ML ONCE
     Dates: start: 20230808, end: 20230809
  26. BENADRYL [Concomitant]
     Active Substance: DIPHENHYDRAMINE HYDROCHLORIDE
     Indication: Product used for unknown indication
     Dosage: TIME INTERVAL: AS NECESSARY: DOSAGE: 50 MG/ML ONCE
     Dates: start: 20230728, end: 20230729
  27. BENADRYL [Concomitant]
     Active Substance: DIPHENHYDRAMINE HYDROCHLORIDE
     Indication: Product used for unknown indication
     Dosage: TIME INTERVAL: AS NECESSARY: DOSAGE: 50 MG/ML ONCE
     Dates: start: 20230726, end: 20230727
  28. BENADRYL [Concomitant]
     Active Substance: DIPHENHYDRAMINE HYDROCHLORIDE
     Indication: Product used for unknown indication
     Dosage: TIME INTERVAL: AS NECESSARY: DOSAGE: 50 MG/ML
     Dates: start: 20230717, end: 20230721
  29. BENADRYL [Concomitant]
     Active Substance: DIPHENHYDRAMINE HYDROCHLORIDE
     Indication: Product used for unknown indication
     Dosage: TIME INTERVAL: AS NECESSARY: DOSAGE: 50 MG/ML ONCE
     Dates: start: 20230716, end: 20230717
  30. BENADRYL [Concomitant]
     Active Substance: DIPHENHYDRAMINE HYDROCHLORIDE
     Indication: Product used for unknown indication
     Dosage: TIME INTERVAL: AS NECESSARY: DOSAGE: 50 MG/ML ONCE
     Dates: start: 20230723, end: 20230724
  31. BENADRYL [Concomitant]
     Active Substance: DIPHENHYDRAMINE HYDROCHLORIDE
     Indication: Product used for unknown indication
     Dosage: DOSAGE: 3 MG/ML 2.5MG
     Dates: start: 20230725, end: 20230816
  32. BENADRYL [Concomitant]
     Active Substance: DIPHENHYDRAMINE HYDROCHLORIDE
     Indication: Product used for unknown indication
     Dosage: DOSAGE: 3 MG/ML 2.5MG
     Dates: start: 20230721, end: 20230725
  33. REGLAN [Concomitant]
     Active Substance: METOCLOPRAMIDE HYDROCHLORIDE
     Indication: Product used for unknown indication
     Dosage: 1 MG/ML SOLUTION?NAUSEA/VOMITING?USE WITH DIPHENHYDRAMINE
     Route: 048
  34. REGLAN [Concomitant]
     Active Substance: METOCLOPRAMIDE HYDROCHLORIDE
     Indication: Product used for unknown indication
     Dosage: DOSAGE: 1 MG/ML SOLN 1 MG
     Route: 048
     Dates: start: 20230725, end: 20230816
  35. REGLAN [Concomitant]
     Active Substance: METOCLOPRAMIDE HYDROCHLORIDE
     Indication: Product used for unknown indication
     Dosage: TIME INTERVAL: AS NECESSARY: DOSAGE: 5 MG/ML ONCE?INJ 1.01 MG
     Dates: start: 20230714, end: 20230714
  36. REGLAN [Concomitant]
     Active Substance: METOCLOPRAMIDE HYDROCHLORIDE
     Indication: Product used for unknown indication
     Dosage: TIME INTERVAL: 0.16666667 HOURS: DOSAGE: 5 MG/ML NEEDED
     Dates: start: 20230717, end: 20230721
  37. REGLAN [Concomitant]
     Active Substance: METOCLOPRAMIDE HYDROCHLORIDE
     Indication: Product used for unknown indication
     Dosage: TIME INTERVAL: 0.16666667 HOURS: DOSAGE: 1 MG/ML ONCE?INJ 1 MG
     Route: 048
     Dates: start: 20230721, end: 20230725
  38. CYTOSAR-U [Suspect]
     Active Substance: CYTARABINE
     Indication: Acute myeloid leukaemia
     Dosage: HIGH DOSE?1 G/M^2
     Route: 065
  39. CYTOSAR-U [Suspect]
     Active Substance: CYTARABINE
     Indication: Acute myeloid leukaemia
     Dosage: HIGH DOSE?1 G/M^2
     Route: 065
     Dates: start: 20230808, end: 20230809
  40. CYTOSAR-U [Suspect]
     Active Substance: CYTARABINE
     Indication: Acute myeloid leukaemia
     Dosage: Q12S
     Route: 065
     Dates: start: 20230719, end: 20230720
  41. CYTOSAR-U [Suspect]
     Active Substance: CYTARABINE
     Indication: Acute myeloid leukaemia
     Dosage: Q12S
     Route: 065
     Dates: start: 20230718, end: 20230719
  42. CYTOSAR-U [Suspect]
     Active Substance: CYTARABINE
     Indication: Acute myeloid leukaemia
     Dosage: Q12S
     Route: 065
     Dates: start: 20230717
  43. CYTOSAR-U [Suspect]
     Active Substance: CYTARABINE
     Indication: Acute myeloid leukaemia
     Dosage: Q12S
     Route: 065
     Dates: start: 20230716, end: 20230717
  44. CYTOSAR-U [Suspect]
     Active Substance: CYTARABINE
     Indication: Acute myeloid leukaemia
     Dosage: Q12S
     Route: 065
     Dates: start: 20230714, end: 20230714
  45. BUMETANIDE [Concomitant]
     Active Substance: BUMETANIDE
     Indication: Product used for unknown indication
     Route: 041
  46. PROPOFOL [Concomitant]
     Active Substance: PROPOFOL
     Indication: Sedation
  47. HYDROMORPHONE [Concomitant]
     Active Substance: HYDROMORPHONE
     Indication: Product used for unknown indication
     Route: 041
  48. MIDAZOLAM [Concomitant]
     Active Substance: MIDAZOLAM
     Indication: Product used for unknown indication
  49. HYDROXYUREA [Concomitant]
     Active Substance: HYDROXYUREA
     Indication: Product used for unknown indication
     Dates: start: 20230928, end: 20230928
  50. HYDROXYUREA [Concomitant]
     Active Substance: HYDROXYUREA
     Indication: Product used for unknown indication
     Dosage: INCREASED DOSE
     Dates: start: 20230929
  51. DECADRON [Concomitant]
     Active Substance: DEXAMETHASONE
     Indication: Product used for unknown indication
     Dosage: 0.1 % OPHTH SOLN 2 DROP ?Q6S
     Dates: start: 20230717, end: 20230721
  52. DECADRON [Concomitant]
     Active Substance: DEXAMETHASONE
     Indication: Product used for unknown indication
     Dosage: 0.1 % OPHTH SOLN 2 DROP ?Q6H ALT
     Dates: start: 20230716, end: 20230717
  53. MEROPENEM [Concomitant]
     Active Substance: MEROPENEM
     Indication: Product used for unknown indication
     Dates: start: 20230927
  54. LINEZOLID [Concomitant]
     Active Substance: LINEZOLID
     Indication: Product used for unknown indication
     Dates: start: 20230927
  55. RENVELA [Concomitant]
     Active Substance: SEVELAMER CARBONATE
     Indication: Blood phosphorus increased
     Dosage: TIME INTERVAL: 0.33333333 DAYS: SUSPENSION PACKET 460 MG
     Route: 048
     Dates: start: 20230726, end: 20230816
  56. RENVELA [Concomitant]
     Active Substance: SEVELAMER CARBONATE
     Indication: Blood phosphorus increased
     Dosage: TIME INTERVAL: 0.33333333 DAYS: SUSPENSION PACKET 350 MG ?WITH FOOD
     Dates: start: 20230721, end: 20230726
  57. BUMEX [Concomitant]
     Active Substance: BUMETANIDE
     Indication: Product used for unknown indication
  58. DILAUDID [Concomitant]
     Active Substance: HYDROMORPHONE HYDROCHLORIDE
     Indication: Product used for unknown indication
  59. KETAMINE [Concomitant]
     Active Substance: KETAMINE
     Indication: Product used for unknown indication
  60. MAGNESIUM [Concomitant]
     Active Substance: MAGNESIUM
     Indication: Product used for unknown indication
  61. ALBUTEROL [Concomitant]
     Active Substance: ALBUTEROL
     Indication: Product used for unknown indication
  62. PRECEDEX [Concomitant]
     Active Substance: DEXMEDETOMIDINE HYDROCHLORIDE
     Indication: Product used for unknown indication
     Dosage: 4 MCG/ML IV BOLUS SOLN - PYXIS ?OVERRIDE PULL
     Dates: start: 20230714
  63. ATIVAN [Concomitant]
     Active Substance: LORAZEPAM
     Indication: Product used for unknown indication
     Dosage: DOSAGE: 2 MG/ML AS NEEDED?CONC SOLN 0.28 MG
     Route: 048
     Dates: start: 20230725, end: 20230816
  64. LACTATED RINGERS SOLUTION [Concomitant]
     Active Substance: CALCIUM CHLORIDE\POTASSIUM CHLORIDE\SODIUM CHLORIDE\SODIUM LACTATE
     Indication: Product used for unknown indication
     Dates: start: 20230815, end: 20230815
  65. SOLU-MEDROL [Concomitant]
     Active Substance: METHYLPREDNISOLONE SODIUM SUCCINATE
     Indication: Product used for unknown indication
     Dosage: TIME INTERVAL: AS NECESSARY: 10.8MG?ONCE
     Dates: start: 20230808, end: 20230809
  66. SOLU-MEDROL [Concomitant]
     Active Substance: METHYLPREDNISOLONE SODIUM SUCCINATE
     Indication: Product used for unknown indication
     Dosage: TIME INTERVAL: AS NECESSARY: 10.8MG?ONCE
     Dates: start: 20230728, end: 20230729
  67. SOLU-MEDROL [Concomitant]
     Active Substance: METHYLPREDNISOLONE SODIUM SUCCINATE
     Indication: Product used for unknown indication
     Dosage: TIME INTERVAL: AS NECESSARY: 10.8MG?ONCE
     Dates: start: 20230726, end: 20230727
  68. SOLU-MEDROL [Concomitant]
     Active Substance: METHYLPREDNISOLONE SODIUM SUCCINATE
     Indication: Product used for unknown indication
     Dosage: TIME INTERVAL: AS NECESSARY: 10.8MG?ONCE
     Dates: start: 20230723, end: 20230724
  69. SOLU-MEDROL [Concomitant]
     Active Substance: METHYLPREDNISOLONE SODIUM SUCCINATE
     Indication: Product used for unknown indication
     Dosage: TIME INTERVAL: AS NECESSARY: ONCE
     Dates: start: 20230716, end: 20230717
  70. MAGNESIUM CARBONATE [Concomitant]
     Active Substance: MAGNESIUM CARBONATE
     Indication: Product used for unknown indication
     Dosage: (54 MG/5 ML MAG EQUIVALENT)) ORAL SOLUTION 1 ML
     Route: 048
     Dates: start: 20230722, end: 20230723
  71. MAGNESIUM CARBONATE [Concomitant]
     Active Substance: MAGNESIUM CARBONATE
     Indication: Product used for unknown indication
     Dosage: (54 MG/5 ML MAG EQUIVALENT)) ORAL SOLUTION 1 ML
     Route: 048
     Dates: start: 20230712, end: 20230721
  72. MAGNESIUM CARBONATE [Concomitant]
     Active Substance: MAGNESIUM CARBONATE
     Indication: Product used for unknown indication
     Dosage: PLACE 2 ML IN THE NG TUBE TWICE DAILY. 9AM/9PM
     Route: 048
  73. MICAFUNGIN [Concomitant]
     Active Substance: MICAFUNGIN SODIUM
     Indication: Product used for unknown indication
     Dosage: 10.1 MG IN 0.9 % NACI (NS) 10.1 ML IV INFUSION?Q245
     Dates: start: 20230715, end: 20230816
  74. MAXIPIME [Concomitant]
     Active Substance: CEFEPIME HYDROCHLORIDE
     Indication: Product used for unknown indication
     Dosage: 510 MG IN 0.9 % NACI (NS) 5.1 ML IV SYRINGE?Q8H
     Dates: start: 20230715, end: 20230816
  75. ROXICODONE [Concomitant]
     Active Substance: OXYCODONE HYDROCHLORIDE
     Indication: Product used for unknown indication
     Dosage: DOSAGE: 1 MG/ML SOLN 1.01 MG?ONCE
     Route: 048
     Dates: start: 20230715, end: 20230816
  76. PROVENTIL [Concomitant]
     Active Substance: ALBUTEROL
     Indication: Product used for unknown indication
     Dosage: INH SOLUTION 2.5 MG
     Dates: start: 20230714, end: 20230714
  77. MICRONEFRIN [Concomitant]
     Indication: Product used for unknown indication
     Dosage: 2.25 % INH SOLUTION 0.5 ML?ONCE
     Dates: start: 20230714, end: 20230714
  78. MORPHINE [Concomitant]
     Active Substance: MORPHINE
     Indication: Product used for unknown indication
     Dosage: INJ 0.51 MG?ONCE?Q10MIN
     Dates: start: 20230714, end: 20230714
  79. SUBLIMAZE [Concomitant]
     Active Substance: FENTANYL CITRATE
     Indication: Product used for unknown indication
     Dosage: 50 MCG/ML (2 ML) INJ 5 MCG?Q10MIN?ONCE
     Dates: start: 20230714, end: 20230714
  80. ADVIL [Concomitant]
     Active Substance: IBUPROFEN
     Indication: Product used for unknown indication
     Dosage: ONCE?(ADVIL, MOTRIN 20 MG/ML) ORAL SUSP 100 MG
     Dates: start: 20230714, end: 20230714
  81. MOTRIN [Concomitant]
     Active Substance: IBUPROFEN
     Indication: Product used for unknown indication
     Dosage: DOSAGE: 20 MG/ML (ADVIL, MOTRIN 20 MG/ML) ORAL SUSP 100 MG?ONCE
     Route: 048
     Dates: start: 20230714, end: 20230714
  82. DEMEROL [Concomitant]
     Active Substance: MEPERIDINE HYDROCHLORIDE
     Indication: Product used for unknown indication
     Dosage: ONCE?INJ 5.05 MG
     Dates: start: 20230714, end: 20230714
  83. SENSORCAINE MPF [Concomitant]
     Active Substance: BUPIVACAINE HYDROCHLORIDE
     Indication: Product used for unknown indication
     Dosage: 0.25 % (PF) INJ?ONCE?INTRAPROCEDURAL
     Dates: start: 20230714, end: 20230714
  84. MARCAINE [Concomitant]
     Active Substance: BUPIVACAINE HYDROCHLORIDE
     Indication: Product used for unknown indication
     Dosage: 0.25 % (PF) INJ? ONCE ?INTRAPROCEDURAL
     Dates: start: 20230714, end: 20230714
  85. PROGRAF [Concomitant]
     Active Substance: TACROLIMUS
     Indication: Product used for unknown indication
     Dosage: SUSP 0.05 MG
     Route: 048
     Dates: start: 20230713, end: 20230718
  86. PROGRAF [Concomitant]
     Active Substance: TACROLIMUS
     Indication: Product used for unknown indication
     Dosage: SUSP 0.1 MG
     Route: 048
     Dates: start: 20230712, end: 20230713
  87. ROCEPHIN [Concomitant]
     Active Substance: CEFTRIAXONE SODIUM
     Indication: Product used for unknown indication
     Dosage: DOSAGE: 40 MG/ML 40 MG/ML IN SW SOLUTION INJ 525.2 MG?Q24S
     Dates: start: 20230712, end: 20230715
  88. ACTIGALL [Concomitant]
     Active Substance: URSODIOL
     Indication: Product used for unknown indication
     Dosage: URSODIOL 20 MG/ML (ACTIGALL) ORAL?SUSP 60 MG
     Route: 048
     Dates: start: 20230712, end: 20230712
  89. ACTIGALL [Concomitant]
     Active Substance: URSODIOL
     Indication: Product used for unknown indication
     Dosage: URSODIOL 20 MG/ML (ACTIGALL) ORAL?SUSP 55 MG
     Route: 048
     Dates: start: 202307, end: 20230816
  90. CATHFLO ACTIVASE [Concomitant]
     Active Substance: ALTEPLASE
     Indication: Product used for unknown indication
     Dates: start: 20230712, end: 20230716
  91. TYLENOL [Concomitant]
     Active Substance: ACETAMINOPHEN
     Indication: Product used for unknown indication
     Dosage: DOSAGE: 32 MG/ML SUSP 160 MG?ONCE?TAKE 10MG/KG/DOSE BY MOUTH EVERY 4 HOURS AS NEEDED FOR PAIN OR ...
     Route: 048
     Dates: start: 20230712, end: 20230816
  92. URSODIOL [Concomitant]
     Active Substance: URSODIOL
     Indication: Product used for unknown indication
     Dates: start: 20230712, end: 20230712
  93. LIDOCAINE [Concomitant]
     Active Substance: LIDOCAINE
     Indication: Product used for unknown indication
     Dosage: ONCE?APPLY 1 APPLICATION. EXTERNALLY AS NEEDED FOR PAIN.
     Dates: start: 20230712, end: 20230816
  94. XYLOCAINE-MPF [Concomitant]
     Active Substance: LIDOCAINE HYDROCHLORIDE
     Indication: Product used for unknown indication
     Dosage: LIDOCAINE PRESERVATIVE FREE
     Dates: start: 20230714
  95. CEFAZOLIN SODIUM [Concomitant]
     Active Substance: CEFAZOLIN SODIUM
     Indication: Product used for unknown indication
     Dosage: INJ - PYXIS OVERRIDE PULL
     Dates: start: 20230714
  96. DIPRIVAN [Concomitant]
     Active Substance: ISOPROPYL ALCOHOL\PROPOFOL
     Indication: Product used for unknown indication
     Dosage: DOSAGE: 10 MG/ML
     Dates: start: 20230714
  97. ARTIFICIAL TEAR [Concomitant]
     Active Substance: LANOLIN\MINERAL OIL\PETROLATUM
     Indication: Product used for unknown indication
     Dosage: 0.2-0.2-1 % OPHTH SOLN 1 DROP?Q6H PRN
     Dates: start: 20230716, end: 20230721
  98. EMEND [Concomitant]
     Active Substance: APREPITANT
     Indication: Product used for unknown indication
     Dosage: 50 MG IN 0.9 % ORDER REPORT	COMPLETED Q72S NACI (NS) 50 ML IV PIGGYBACK?Q72S
     Dates: start: 20230716, end: 20230719
  99. DEXTROSE [Concomitant]
     Active Substance: DEXTROSE\DEXTROSE MONOHYDRATE
     Indication: Product used for unknown indication
     Dosage: DEXTROSE 5 % AND 0.45% NACI (D5 1/2 NS) IV SOLUTION
     Dates: start: 20230716, end: 20230726
  100. ZYLOPRIM [Concomitant]
     Active Substance: ALLOPURINOL
     Indication: Product used for unknown indication
     Dosage: DOSAGE: 20 MG/ML ORAL SUSP 33.4 MG?Q8S
     Route: 048
     Dates: start: 20230716, end: 20230731
  101. DECITABINE [Concomitant]
     Active Substance: DECITABINE
     Indication: Product used for unknown indication
     Dates: start: 202308
  102. LASIX [Concomitant]
     Active Substance: FUROSEMIDE
     Indication: Product used for unknown indication

REACTIONS (35)
  - Death [Fatal]
  - Immunosuppression [Not Recovered/Not Resolved]
  - Off label use [Not Recovered/Not Resolved]
  - Disease risk factor [Not Recovered/Not Resolved]
  - Nausea [Recovered/Resolved]
  - Pancytopenia [Not Recovered/Not Resolved]
  - Off label use [Recovered/Resolved]
  - Dermatitis diaper [Recovering/Resolving]
  - Hyperphosphataemia [Recovered/Resolved]
  - Pyrexia [Recovered/Resolved]
  - Blood calcium increased [Recovered/Resolved]
  - Condition aggravated [Unknown]
  - Respiratory failure [Unknown]
  - Unevaluable event [Unknown]
  - Lymphadenitis [Unknown]
  - Upper airway obstruction [Unknown]
  - Obstructive airways disorder [Unknown]
  - Leukaemic infiltration [Unknown]
  - Mucosal inflammation [Unknown]
  - Vomiting [Unknown]
  - Haemophagocytic lymphohistiocytosis [Unknown]
  - Aspiration bone marrow [Unknown]
  - Neutropenia [Unknown]
  - Medical device site haemorrhage [Unknown]
  - Medical device site inflammation [Unknown]
  - Melaena [Unknown]
  - Abdominal distension [Unknown]
  - Oliguria [Unknown]
  - Hypoxia [Not Recovered/Not Resolved]
  - Hypercapnia [Unknown]
  - Mucosal exfoliation [Not Recovered/Not Resolved]
  - Bronchospasm [Not Recovered/Not Resolved]
  - Respiratory distress [Unknown]
  - Disseminated intravascular coagulation [Unknown]
  - Pulmonary haemorrhage [Unknown]

NARRATIVE: CASE EVENT DATE: 20230101
